FAERS Safety Report 25181829 (Version 1)
Quarter: 2025Q2

REPORT INFORMATION
  Report Type: Spontaneous
  Country: US (occurrence: US)
  Receive Date: 20250410
  Receipt Date: 20250410
  Transmission Date: 20250717
  Serious: No
  Sender: SANOFI AVENTIS
  Company Number: US-SA-2025SA101849

PATIENT
  Age: 24 Year
  Sex: Female

DRUGS (3)
  1. DUPIXENT [Suspect]
     Active Substance: DUPILUMAB
     Indication: Dermatitis atopic
     Dosage: 300 MG, QOW
     Route: 058
     Dates: start: 202204, end: 202503
  2. GABAPENTIN [Concomitant]
     Active Substance: GABAPENTIN
  3. KYLEENA [Concomitant]
     Active Substance: LEVONORGESTREL

REACTIONS (2)
  - Road traffic accident [Unknown]
  - Dermatitis atopic [Unknown]

NARRATIVE: CASE EVENT DATE: 20250301
